FAERS Safety Report 9282932 (Version 3)
Quarter: 2021Q3

REPORT INFORMATION
  Report Type: Spontaneous
  Country: ES (occurrence: ES)
  Receive Date: 20130510
  Receipt Date: 20210701
  Transmission Date: 20211014
  Serious: Yes (Death, Hospitalization, Other)
  Sender: FDA-Public Use
  Company Number: PHHY2013ES045507

PATIENT
  Age: 36 Year
  Sex: Female

DRUGS (16)
  1. AMPHOTERICIN B. [Concomitant]
     Active Substance: AMPHOTERICIN B
     Indication: ASPERGILLUS INFECTION
     Dosage: 5 MG/KG, QD
     Route: 065
  2. CYCLOPHOSPHAMIDE. [Concomitant]
     Active Substance: CYCLOPHOSPHAMIDE
     Indication: BONE MARROW CONDITIONING REGIMEN
     Route: 065
  3. VORICONAZOLE. [Suspect]
     Active Substance: VORICONAZOLE
     Indication: ASPERGILLUS INFECTION
     Dosage: 200 MG, Q12H
     Route: 048
     Dates: end: 200403
  4. CASPOFUNGIN [Concomitant]
     Active Substance: CASPOFUNGIN
     Indication: ASPERGILLUS INFECTION
     Dosage: 70 MG, QD
     Route: 065
  5. CASPOFUNGIN [Concomitant]
     Active Substance: CASPOFUNGIN
     Dosage: 50 MG, QD
     Route: 065
  6. BUSULFAN. [Concomitant]
     Active Substance: BUSULFAN
     Indication: BONE MARROW CONDITIONING REGIMEN
     Route: 048
  7. ITRACONAZOLE. [Suspect]
     Active Substance: ITRACONAZOLE
     Indication: ORAL CANDIDIASIS
     Dosage: 100 MG, QD
     Route: 048
     Dates: start: 20030306
  8. VORICONAZOLE. [Suspect]
     Active Substance: VORICONAZOLE
     Dosage: UNK
     Route: 065
     Dates: start: 200405
  9. VORICONAZOLE. [Suspect]
     Active Substance: VORICONAZOLE
     Dosage: 200 MG, Q12H
     Route: 065
     Dates: start: 200409
  10. METHOTREXATE. [Concomitant]
     Active Substance: METHOTREXATE
     Indication: PROPHYLAXIS AGAINST GRAFT VERSUS HOST DISEASE
     Route: 065
  11. VORICONAZOLE. [Suspect]
     Active Substance: VORICONAZOLE
     Dosage: 4 MG/KG, Q12H
     Route: 042
  12. VORICONAZOLE. [Suspect]
     Active Substance: VORICONAZOLE
     Indication: ASPERGILLUS INFECTION
     Dosage: 6 MG/KG, Q12H, FOR THE FIRST 24 HOURS
     Route: 042
  13. VORICONAZOLE. [Suspect]
     Active Substance: VORICONAZOLE
     Dosage: 200 MG, Q12H
     Route: 048
  14. AMPHOTERICIN B, LIPOSOME [Concomitant]
     Active Substance: AMPHOTERICIN B
     Indication: PRODUCT USED FOR UNKNOWN INDICATION
     Route: 065
  15. CYCLOSPORINE. [Concomitant]
     Active Substance: CYCLOSPORINE
     Indication: PROPHYLAXIS AGAINST GRAFT VERSUS HOST DISEASE
     Route: 065
  16. FLUCONAZOLE. [Suspect]
     Active Substance: FLUCONAZOLE
     Indication: ORAL CANDIDIASIS
     Dosage: 100 MG, QD
     Route: 048

REACTIONS (10)
  - Death [Fatal]
  - Dyspnoea [Unknown]
  - Pneumonia [Unknown]
  - Oral candidiasis [Unknown]
  - Bronchopulmonary aspergillosis [Unknown]
  - Aspergillus infection [Unknown]
  - Respiratory disorder [Not Recovered/Not Resolved]
  - Respiratory tract infection [Unknown]
  - Condition aggravated [Unknown]
  - Pathogen resistance [Unknown]

NARRATIVE: CASE EVENT DATE: 20030317
